FAERS Safety Report 4965743-X (Version None)
Quarter: 2006Q2

REPORT INFORMATION
  Report Type: 
  Country: None (occurrence: None)
  Receive Date: 20060407
  Receipt Date: 20060331
  Transmission Date: 20061013
  Serious: Yes (Hospitalization, Disabling)
  Sender: FDA-Public Use
  Company Number: DE-BOEHRINGER INGELHEIM PHARMACEUTICALS, INC.-2006-DE-01732DE

PATIENT
  Age: 47 Year
  Sex: Male
  Weight: 69 kg

DRUGS (5)
  1. VIRAMUNE [Suspect]
  2. LOPERAMID [Concomitant]
     Dosage: 2 - 5
     Dates: start: 19990801, end: 20010601
  3. LENDORMIN [Concomitant]
     Dates: start: 19990801, end: 20010601
  4. OMEPRAZOLE [Concomitant]
     Dosage: 2-4
     Dates: start: 19990801, end: 20010601
  5. MAALOXAN [Concomitant]
     Dosage: PRN
     Dates: start: 19990801, end: 20010601

REACTIONS (4)
  - DIARRHOEA [None]
  - HYPERHIDROSIS [None]
  - NAUSEA [None]
  - SLEEP DISORDER [None]
